FAERS Safety Report 15539591 (Version 3)
Quarter: 2019Q1

REPORT INFORMATION
  Report Type: Spontaneous
  Country: DE (occurrence: DE)
  Receive Date: 20181023
  Receipt Date: 20190218
  Transmission Date: 20190417
  Serious: Yes (Other)
  Sender: FDA-Public Use
  Company Number: PHHY2018DE131355

PATIENT
  Age: 48 Year
  Sex: Male
  Weight: 76 kg

DRUGS (19)
  1. PANITUMUMAB [Suspect]
     Active Substance: PANITUMUMAB
     Indication: COLORECTAL CANCER METASTATIC
     Dosage: 460 MG, UNK
     Route: 042
  2. PLIAZON [Concomitant]
     Indication: PROPHYLAXIS
     Dosage: UNK UNK, PRN
     Route: 061
     Dates: start: 20180516
  3. MONO-EMBOLEX [Concomitant]
     Active Substance: CERTOPARIN SODIUM
     Indication: PROPHYLAXIS
     Dosage: 3000 IU, QD
     Route: 058
     Dates: start: 20180412, end: 20180518
  4. BETAISODONA [Concomitant]
     Active Substance: POVIDONE-IODINE
     Indication: PARONYCHIA
     Dosage: UNK UNK, PRN
     Route: 061
  5. MOVICOL [Concomitant]
     Active Substance: POLYETHYLENE GLYCOL 3350\POTASSIUM CHLORIDE\SODIUM BICARBONATE\SODIUM CHLORIDE
     Indication: CONSTIPATION
     Dosage: 13.7 G, PRN
     Route: 048
     Dates: start: 20180716, end: 20180727
  6. DOXY M [Concomitant]
     Indication: PROPHYLAXIS
     Dosage: 100 MG, QD
     Route: 048
     Dates: start: 20180516
  7. VIGANTOL [Concomitant]
     Active Substance: CHOLECALCIFEROL
     Indication: PRODUCT USED FOR UNKNOWN INDICATION
     Dosage: 1000 IU, QD
     Route: 048
     Dates: start: 20180518
  8. LEVOFLOXACIN. [Concomitant]
     Active Substance: LEVOFLOXACIN
     Indication: INFECTION
     Dosage: 1000 MG, QD (500 MG BID)
     Route: 048
     Dates: start: 20180530
  9. LEVOFLOXACIN. [Concomitant]
     Active Substance: LEVOFLOXACIN
     Dosage: 1000 MG, QD (500 MG BID)
     Route: 048
     Dates: start: 20180605
  10. OXALIPLATIN. [Suspect]
     Active Substance: OXALIPLATIN
     Indication: COLORECTAL CANCER METASTATIC
     Dosage: 165 MG, UNK
     Route: 065
  11. DOXY M [Concomitant]
     Dosage: 100 MG, QD
     Route: 048
     Dates: start: 20181017
  12. PLIAZON [Concomitant]
     Dosage: UNK UNK, PRN
     Route: 061
     Dates: start: 20181029
  13. GLANDOMED [Concomitant]
     Indication: PROPHYLAXIS
     Dosage: UNK UNK, BID
     Route: 048
  14. FERROSANOL [Concomitant]
     Active Substance: FERROUS GLUCONATE
     Indication: ANAEMIA
     Dosage: 80 MG, TID (100 MG QD)
     Route: 048
     Dates: start: 20180514
  15. FOLINIC ACID [Suspect]
     Active Substance: LEUCOVORIN
     Indication: COLORECTAL CANCER METASTATIC
     Dosage: 780 MG, UNK
     Route: 065
  16. BEPANTHEN [Concomitant]
     Indication: PARONYCHIA
     Dosage: UNK UNK, PRN
     Route: 061
     Dates: start: 20180627, end: 20180717
  17. FLUOROURACIL. [Suspect]
     Active Substance: FLUOROURACIL
     Indication: COLORECTAL CANCER METASTATIC
     Dosage: 4650 MG, UNK
     Route: 042
  18. FLUOROURACIL. [Suspect]
     Active Substance: FLUOROURACIL
     Dosage: 800 MG, UNK
     Route: 040
  19. FERROSANOL [Concomitant]
     Active Substance: FERROUS GLUCONATE
     Dosage: 80 MG, TID (100 MG QD)
     Route: 048
     Dates: start: 20181030

REACTIONS (3)
  - Dry eye [Unknown]
  - Dermatitis acneiform [Recovering/Resolving]
  - Vision blurred [Unknown]

NARRATIVE: CASE EVENT DATE: 20181009
